FAERS Safety Report 7741269-5 (Version None)
Quarter: 2011Q3

REPORT INFORMATION
  Report Type: 
  Country: None (occurrence: None)
  Receive Date: 20110909
  Receipt Date: 20110826
  Transmission Date: 20111222
  Serious: Yes (Hospitalization)
  Sender: FDA-Public Use
  Company Number: CH-WATSON-2011-12659

PATIENT
  Age: 61 Year
  Sex: Male

DRUGS (2)
  1. CLOMIPRAMINE HYDROCHLORIDE (UNKNOWN) [Suspect]
     Indication: DEPRESSION
     Dosage: 75 MG, DAILY
     Route: 065
  2. LITHIUM CARBONATE [Suspect]
     Indication: DYSTHYMIC DISORDER
     Dosage: 1320 MG, DAILY
     Route: 065

REACTIONS (16)
  - ABDOMINAL PAIN [None]
  - VOMITING [None]
  - BUNDLE BRANCH BLOCK LEFT [None]
  - NAUSEA [None]
  - URINARY RETENTION [None]
  - BLOOD CREATININE INCREASED [None]
  - TREMOR [None]
  - VISUAL IMPAIRMENT [None]
  - SYNCOPE [None]
  - RENAL FAILURE ACUTE [None]
  - ATAXIA [None]
  - VERTIGO [None]
  - ELECTROCARDIOGRAM QT PROLONGED [None]
  - VENTRICULAR EXTRASYSTOLES [None]
  - TOXICITY TO VARIOUS AGENTS [None]
  - BUNDLE BRANCH BLOCK RIGHT [None]
